FAERS Safety Report 16014607 (Version 3)
Quarter: 2024Q4

REPORT INFORMATION
  Report Type: Spontaneous
  Country: ES (occurrence: ES)
  Receive Date: 20190227
  Receipt Date: 20241223
  Transmission Date: 20250115
  Serious: Yes (Disabling, Other)
  Sender: TEVA
  Company Number: None

PATIENT
  Age: 60 Year
  Sex: Male
  Weight: 64 kg

DRUGS (4)
  1. ENTECAVIR [Suspect]
     Active Substance: ENTECAVIR
     Indication: Hepatitis B
     Dosage: 0-1-0
     Route: 048
     Dates: start: 201101
  2. ATORVASTATIN CALCIUM [Suspect]
     Active Substance: ATORVASTATIN CALCIUM
     Indication: Dyslipidaemia
     Dosage: DOSAGE TEXT: 0-0-1; FILM-COATED TABLETS, 28 TABLETS
     Route: 048
     Dates: start: 20031112, end: 20181106
  3. ASPIRIN [Concomitant]
     Active Substance: ASPIRIN
     Indication: Product used for unknown indication
     Dosage: GASTRO-RESISTANT TABLETS EFG, 30 TABLETS
     Route: 048
     Dates: start: 20030527, end: 201804
  4. IMBRUVICA [Suspect]
     Active Substance: IBRUTINIB
     Indication: Chronic lymphocytic leukaemia
     Dosage: DOSAGE TEXT: 3 CAPSULES (420MG) EVERY 24 HOURS. (0-0-3-0). 3 COMPR. OF 140 MG TOGETHER (SNACK)
     Route: 048
     Dates: start: 20180413, end: 20190128

REACTIONS (1)
  - Rhabdomyolysis [Not Recovered/Not Resolved]

NARRATIVE: CASE EVENT DATE: 20181001
